FAERS Safety Report 8282935-5 (Version None)
Quarter: 2012Q2

REPORT INFORMATION
  Report Type: 
  Country: None (occurrence: None)
  Receive Date: 20120413
  Receipt Date: 20120330
  Transmission Date: 20120825
  Serious: Yes (Hospitalization)
  Sender: FDA-Public Use
  Company Number: FR-ROCHE-775173

PATIENT
  Sex: Male
  Weight: 69.7 kg

DRUGS (9)
  1. BENDAMUSTINE [Suspect]
     Indication: CHRONIC LYMPHOCYTIC LEUKAEMIA
     Dosage: DOSAGE FORM: 90 MG/M2. LAST DOSE PRIOR TO SAE: 11 JAN 2011.
     Route: 042
  2. TROSPIUM CHLORIDE [Concomitant]
  3. DILTIAZEM HCL [Concomitant]
  4. ZOFRAN [Concomitant]
     Dates: start: 20110110, end: 20110111
  5. BRICANYL [Concomitant]
     Dosage: TDD: 3 INH.
     Dates: start: 20110111, end: 20110111
  6. ATROVENT [Concomitant]
     Dosage: TDD: 3 INH.
     Dates: start: 20110111, end: 20110111
  7. PRAVASTATIN [Concomitant]
  8. PIASCLEDINE (FRANCE) [Concomitant]
  9. MABTHERA [Suspect]
     Indication: CHRONIC LYMPHOCYTIC LEUKAEMIA
     Dosage: DOSAGE FORM: 500 MG/M2.  LAST DOSE PRIOR SAE: 10 JAN 2011.
     Route: 042

REACTIONS (1)
  - TREMOR [None]
